FAERS Safety Report 7267622-4 (Version None)
Quarter: 2011Q1

REPORT INFORMATION
  Report Type: 
  Country: None (occurrence: None)
  Receive Date: 20110121
  Receipt Date: 20110113
  Transmission Date: 20110831
  Serious: Yes (Hospitalization, Disabling)
  Sender: FDA-Public Use
  Company Number: 2010P1000727

PATIENT
  Age: 74 Year
  Sex: Female
  Weight: 74.8435 kg

DRUGS (9)
  1. PEPTO BISMOL (BISMUTH SUBSALICYLATE) [Concomitant]
  2. LEVOTHYROXINE SODIUM [Concomitant]
  3. SIMVASTATIN [Concomitant]
  4. ALIGN (PROBIOTIC SUPPLEMENT) [Concomitant]
  5. WARFARIN SODIUM [Suspect]
     Indication: DEEP VEIN THROMBOSIS
     Dosage: (5 MG; QD FOR 5 DAYS; PO) (2.5 MG; QD ON TUESDAY AND FRIDAY; PO)
     Route: 048
     Dates: start: 20100620
  6. WARFARIN SODIUM [Suspect]
     Indication: STENT PLACEMENT
     Dosage: (5 MG; QD FOR 5 DAYS; PO) (2.5 MG; QD ON TUESDAY AND FRIDAY; PO)
     Route: 048
     Dates: start: 20100620
  7. WARFARIN SODIUM [Suspect]
     Indication: DEEP VEIN THROMBOSIS
     Dosage: (5 MG; QD FOR 5 DAYS; PO) (2.5 MG; QD ON TUESDAY AND FRIDAY; PO)
     Route: 048
     Dates: start: 20100620
  8. WARFARIN SODIUM [Suspect]
     Indication: STENT PLACEMENT
     Dosage: (5 MG; QD FOR 5 DAYS; PO) (2.5 MG; QD ON TUESDAY AND FRIDAY; PO)
     Route: 048
     Dates: start: 20100620
  9. CHOLESTYRAMINE ORAL SUSPENSION [Concomitant]

REACTIONS (13)
  - LISTLESS [None]
  - ASTHENIA [None]
  - FEELING COLD [None]
  - BLOOD POTASSIUM DECREASED [None]
  - LETHARGY [None]
  - BLOOD CHLORIDE INCREASED [None]
  - PRODUCT SUBSTITUTION ISSUE [None]
  - BACTERIURIA [None]
  - INTERNATIONAL NORMALISED RATIO INCREASED [None]
  - BLOOD GLUCOSE ABNORMAL [None]
  - INCREASED TENDENCY TO BRUISE [None]
  - PROTHROMBIN TIME PROLONGED [None]
  - DIARRHOEA [None]
